FAERS Safety Report 8112818-2 (Version None)
Quarter: 2012Q1

REPORT INFORMATION
  Report Type: 
  Country: None (occurrence: None)
  Receive Date: 20120203
  Receipt Date: 20120123
  Transmission Date: 20120608
  Serious: Yes (Other)
  Sender: FDA-Public Use
  Company Number: US-JNJFOC-20111006941

PATIENT
  Sex: Male
  Weight: 59.5 kg

DRUGS (9)
  1. PREDNISONE TAB [Suspect]
     Indication: PRODUCT USED FOR UNKNOWN INDICATION
  2. MESALAMINE [Suspect]
     Indication: PRODUCT USED FOR UNKNOWN INDICATION
     Route: 048
  3. LOMOTIL [Suspect]
     Indication: PRODUCT USED FOR UNKNOWN INDICATION
  4. DOXEPIN HCL [Suspect]
     Indication: PRODUCT USED FOR UNKNOWN INDICATION
  5. PROBIOTICS [Suspect]
     Indication: PRODUCT USED FOR UNKNOWN INDICATION
  6. ANTIBIOTICS [Suspect]
     Indication: INFLAMMATORY BOWEL DISEASE
  7. PHENERGAN [Suspect]
     Indication: PRODUCT USED FOR UNKNOWN INDICATION
  8. REMICADE [Suspect]
     Indication: INFLAMMATORY BOWEL DISEASE
     Route: 042
     Dates: start: 20090108
  9. CYCLOSPORINE [Suspect]
     Indication: PRODUCT USED FOR UNKNOWN INDICATION

REACTIONS (2)
  - SYNCOPE [None]
  - TONIC CLONIC MOVEMENTS [None]
